FAERS Safety Report 14054076 (Version 1)
Quarter: 2017Q4

REPORT INFORMATION
  Report Type: Spontaneous
  Country: US (occurrence: US)
  Receive Date: 20171006
  Receipt Date: 20171006
  Transmission Date: 20180321
  Serious: No
  Sender: FDA-Public Use
  Company Number: US-JNJFOC-20170811840

PATIENT
  Sex: Female

DRUGS (3)
  1. ROGAINE [Suspect]
     Active Substance: MINOXIDIL
     Route: 061
  2. KERATIN [Suspect]
     Active Substance: KERATIN
     Indication: PRODUCT USED FOR UNKNOWN INDICATION
     Route: 061
  3. ROGAINE [Suspect]
     Active Substance: MINOXIDIL
     Indication: PRODUCT USED FOR UNKNOWN INDICATION
     Route: 061

REACTIONS (2)
  - Burning sensation [Unknown]
  - Contraindicated product administered [Unknown]
